FAERS Safety Report 9276536 (Version 3)
Quarter: 2013Q2

REPORT INFORMATION
  Report Type: Spontaneous
  Country: US (occurrence: US)
  Receive Date: 20130507
  Receipt Date: 20130624
  Transmission Date: 20140414
  Serious: Yes (Other)
  Sender: FDA-Public Use
  Company Number: US-TEVA-402843USA

PATIENT
  Sex: Male

DRUGS (2)
  1. METOPROLOL [Suspect]
  2. OLMESARTAN MEDOXOMIL [Suspect]

REACTIONS (6)
  - Coeliac disease [Unknown]
  - Weight decreased [Unknown]
  - Nausea [Unknown]
  - Diarrhoea [Unknown]
  - Decreased appetite [Unknown]
  - Malaise [Unknown]
